FAERS Safety Report 7037233-4 (Version None)
Quarter: 2010Q4

REPORT INFORMATION
  Report Type: 
  Country: None (occurrence: None)
  Receive Date: 20101011
  Receipt Date: 20100929
  Transmission Date: 20110411
  Serious: Yes (Death, Other)
  Sender: FDA-Public Use
  Company Number: CH-ROCHE-730445

PATIENT
  Age: 64 Year
  Sex: Male

DRUGS (3)
  1. BEVACIZUMAB [Suspect]
     Route: 042
     Dates: start: 20100112, end: 20100204
  2. XELODA [Suspect]
     Route: 048
     Dates: start: 20100112, end: 20100204
  3. OXALIPLATIN [Concomitant]
     Route: 042
     Dates: start: 20100112, end: 20100204

REACTIONS (2)
  - MALIGNANT NEOPLASM PROGRESSION [None]
  - PULMONARY EMBOLISM [None]
